FAERS Safety Report 10341619 (Version 1)
Quarter: 2014Q3

REPORT INFORMATION
  Report Type: Spontaneous
  Country: IT (occurrence: IT)
  Receive Date: 20140725
  Receipt Date: 20140725
  Transmission Date: 20150326
  Serious: Yes (Other)
  Sender: FDA-Public Use
  Company Number: IT-RANBAXY-2014RR-83857

PATIENT
  Age: 44 Year
  Sex: Female

DRUGS (1)
  1. CLARITHROMYCIN. [Suspect]
     Active Substance: CLARITHROMYCIN
     Indication: CYST
     Dosage: 1 G, DAILY
     Route: 048
     Dates: start: 20140706, end: 20140710

REACTIONS (5)
  - Nausea [Recovering/Resolving]
  - Vertigo [Recovering/Resolving]
  - Pruritus generalised [Recovering/Resolving]
  - Dry mouth [Recovering/Resolving]
  - Face oedema [Recovering/Resolving]

NARRATIVE: CASE EVENT DATE: 20140707
